FAERS Safety Report 8540843-6 (Version None)
Quarter: 2012Q2

REPORT INFORMATION
  Report Type: 
  Country: None (occurrence: None)
  Receive Date: 20120412
  Receipt Date: 20090211
  Transmission Date: 20120825
  Serious: Yes (Other)
  Sender: FDA-Public Use
  Company Number: PHEH2009US01670

PATIENT
  Age: 83 Year
  Sex: Male
  Weight: 86.6 kg

DRUGS (10)
  1. ZOMETA [Suspect]
     Indication: MULTIPLE MYELOMA
     Dates: start: 20040101
  2. PREDNISONE TAB [Concomitant]
  3. LOVAZA [Concomitant]
  4. ALKERAN [Concomitant]
  5. LIPITOR [Concomitant]
  6. EPOETIN ALFA (EPOETIN ALFA) [Concomitant]
  7. CIMETIDINE [Concomitant]
  8. AREDIA [Suspect]
     Dosage: 90 MG, INFUSION
     Dates: start: 20040805
  9. ATENOLOL [Concomitant]
  10. PLAVIX [Concomitant]

REACTIONS (12)
  - OSTEITIS [None]
  - PERIODONTAL INFECTION [None]
  - SWELLING FACE [None]
  - OSTEONECROSIS [None]
  - PAIN IN JAW [None]
  - LESION EXCISION [None]
  - OSTEOMYELITIS DRAINAGE [None]
  - TOOTHACHE [None]
  - DEBRIDEMENT [None]
  - TOOTH INFECTION [None]
  - JAW LESION EXCISION [None]
  - ERYTHEMA [None]
